FAERS Safety Report 8036502-9 (Version None)
Quarter: 2012Q1

REPORT INFORMATION
  Report Type: 
  Country: None (occurrence: None)
  Receive Date: 20120111
  Receipt Date: 20111228
  Transmission Date: 20120608
  Serious: Yes (Death)
  Sender: FDA-Public Use
  Company Number: US-UCBSA-049052

PATIENT
  Age: 35 Year
  Sex: Female

DRUGS (5)
  1. METHAMPHETAMINE [Suspect]
  2. TRAZODONE HCL [Suspect]
  3. DIAZEPAM [Suspect]
  4. ACETAMINOPHEN AND HYDROCODONE BITARTRATE [Suspect]
  5. ETHANOL [Suspect]

REACTIONS (1)
  - DRUG ABUSE [None]
